FAERS Safety Report 7401743-8 (Version None)
Quarter: 2011Q1

REPORT INFORMATION
  Report Type: 
  Country: None (occurrence: None)
  Receive Date: 20110329
  Receipt Date: 20110316
  Transmission Date: 20110831
  Serious: Yes (Hospitalization)
  Sender: FDA-Public Use
  Company Number: 2011SP012107

PATIENT
  Age: 15 Year
  Sex: Male
  Weight: 53 kg

DRUGS (2)
  1. PEGINTERFERON ALFA-2B [Suspect]
     Indication: OSTEOSARCOMA METASTATIC
     Dosage: 100 MCG
     Dates: start: 20091221, end: 20100329
  2. PEGINTERFERON ALFA-2B [Suspect]
     Indication: METASTASES TO LUNG
     Dosage: 100 MCG
     Dates: start: 20091221, end: 20100329

REACTIONS (3)
  - OSTEOMYELITIS ACUTE [None]
  - SCAR [None]
  - POST PROCEDURAL SWELLING [None]
